FAERS Safety Report 26107768 (Version 1)
Quarter: 2025Q4

REPORT INFORMATION
  Report Type: Spontaneous
  Country: US (occurrence: None)
  Receive Date: 20251127
  Receipt Date: 20251127
  Transmission Date: 20260117
  Serious: Yes (Death)
  Sender: FDA-CTU
  Company Number: None

PATIENT
  Age: 65 Year
  Sex: Male

DRUGS (1)
  1. VENCLEXTA [Suspect]
     Active Substance: VENETOCLAX
     Dosage: OTHER FREQUENCY : DAILY FOR 14 DAYS ON THEN 14 DAYS OFF;?
     Route: 048

REACTIONS (1)
  - Death [None]
